FAERS Safety Report 26209202 (Version 1)
Quarter: 2025Q4

REPORT INFORMATION
  Report Type: Spontaneous
  Country: US (occurrence: None)
  Receive Date: 20251226
  Receipt Date: 20251226
  Transmission Date: 20260118
  Serious: Yes (Hospitalization)
  Sender: FDA-CTU
  Company Number: None

PATIENT
  Sex: Female
  Weight: 60.3 kg

DRUGS (2)
  1. WINREVAIR [Suspect]
     Active Substance: SOTATERCEPT-CSRK
     Indication: Pulmonary arterial hypertension
     Dosage: OTHER FREQUENCY : ONCE;
     Route: 058
     Dates: start: 20251209
  2. REMODULIN [Suspect]
     Active Substance: TREPROSTINIL

REACTIONS (2)
  - Acute respiratory failure [None]
  - General physical health deterioration [None]
